FAERS Safety Report 5775151-X (Version None)
Quarter: 2008Q2

REPORT INFORMATION
  Report Type: 
  Country: None (occurrence: None)
  Receive Date: 20080616
  Receipt Date: 20080616
  Transmission Date: 20081010
  Serious: Yes (Life-Threatening)
  Sender: FDA-Public Use
  Company Number: None

PATIENT
  Sex: Male
  Weight: 77.1115 kg

DRUGS (1)
  1. ADVAIS DISKUS  250/50  GLAXOSMITHKLINE [Suspect]
     Indication: CHRONIC OBSTRUCTIVE PULMONARY DISEASE
     Dosage: TWICE DAILY INHAL
     Route: 055

REACTIONS (2)
  - FOREIGN BODY TRAUMA [None]
  - HAEMOPTYSIS [None]
